FAERS Safety Report 15403073 (Version 5)
Quarter: 2018Q4

REPORT INFORMATION
  Report Type: Spontaneous
  Country: US (occurrence: US)
  Receive Date: 20180919
  Receipt Date: 20181109
  Transmission Date: 20190204
  Serious: No
  Sender: FDA-Public Use
  Company Number: US-ELI_LILLY_AND_COMPANY-US201808014806

PATIENT
  Age: 34 Year
  Sex: Female

DRUGS (11)
  1. ADCIRCA [Suspect]
     Active Substance: TADALAFIL
     Dosage: 40 MG, DAILY
     Route: 065
     Dates: start: 20180822
  2. UPTRAVI [Suspect]
     Active Substance: SELEXIPAG
     Indication: PULMONARY HYPERTENSION
     Dosage: 600 UG, BID
     Route: 065
     Dates: start: 20180731
  3. AMBRISENTAN [Suspect]
     Active Substance: AMBRISENTAN
     Indication: PULMONARY HYPERTENSION
     Dosage: 10 MG, DAILY
     Route: 065
     Dates: start: 20180717
  4. UPTRAVI [Suspect]
     Active Substance: SELEXIPAG
     Dosage: 1000 UG, UNKNOWN
     Route: 065
  5. UPTRAVI [Suspect]
     Active Substance: SELEXIPAG
     Dosage: 600 UG, BID
     Route: 065
     Dates: start: 20181020
  6. UPTRAVI [Suspect]
     Active Substance: SELEXIPAG
     Dosage: 800 UG, BID
     Route: 065
     Dates: start: 20181015
  7. UPTRAVI [Suspect]
     Active Substance: SELEXIPAG
     Dosage: 400 UG, BID
     Route: 065
  8. ADCIRCA [Suspect]
     Active Substance: TADALAFIL
     Indication: PULMONARY HYPERTENSION
     Dosage: 40 MG, BID
     Route: 048
     Dates: start: 20180821
  9. UPTRAVI [Suspect]
     Active Substance: SELEXIPAG
     Dosage: 1200 UG, BID
     Route: 065
     Dates: start: 20180801
  10. TADALAFIL. [Suspect]
     Active Substance: TADALAFIL
     Indication: PRODUCT USED FOR UNKNOWN INDICATION
     Dosage: 40 MG, DAILY
     Route: 065
     Dates: start: 20180822
  11. UPTRAVI [Suspect]
     Active Substance: SELEXIPAG
     Dosage: 800 MG, UNKNOWN
     Route: 065

REACTIONS (12)
  - Prescribed overdose [Unknown]
  - Diarrhoea [Not Recovered/Not Resolved]
  - Dyspnoea [Not Recovered/Not Resolved]
  - Gout [Not Recovered/Not Resolved]
  - Gait disturbance [Unknown]
  - Weight increased [Unknown]
  - Pain [Not Recovered/Not Resolved]
  - Dyspepsia [Not Recovered/Not Resolved]
  - Headache [Not Recovered/Not Resolved]
  - Vomiting [Unknown]
  - Nausea [Unknown]
  - Musculoskeletal pain [Not Recovered/Not Resolved]

NARRATIVE: CASE EVENT DATE: 20180903
